FAERS Safety Report 4374603-7 (Version None)
Quarter: 2004Q2

REPORT INFORMATION
  Report Type: 
  Country: None (occurrence: None)
  Receive Date: 20040609
  Receipt Date: 20040601
  Transmission Date: 20050107
  Serious: Yes (Hospitalization)
  Sender: FDA-Public Use
  Company Number: GB-ROCHE-369592

PATIENT
  Age: 70 Year
  Sex: Male

DRUGS (4)
  1. CAPECITABINE [Suspect]
     Indication: GASTROOESOPHAGEAL CANCER
     Route: 048
     Dates: start: 20040419
  2. EPIRUBICIN [Suspect]
     Indication: GASTROOESOPHAGEAL CANCER
     Route: 040
     Dates: start: 20040419
  3. CISPLATIN [Suspect]
     Indication: GASTROOESOPHAGEAL CANCER
     Route: 042
     Dates: start: 20040419
  4. SIMVASTATIN [Concomitant]

REACTIONS (3)
  - CEREBROVASCULAR ACCIDENT [None]
  - CIRCULATORY COLLAPSE [None]
  - LACUNAR INFARCTION [None]
